FAERS Safety Report 22014590 (Version 5)
Quarter: 2023Q2

REPORT INFORMATION
  Report Type: Report from Study
  Country: US (occurrence: US)
  Receive Date: 20230221
  Receipt Date: 20230425
  Transmission Date: 20230721
  Serious: Yes (Hospitalization)
  Sender: FDA-Public Use
  Company Number: US-ALNYLAM PHARMACEUTICALS, INC.-ALN-2023-000686

PATIENT

DRUGS (1)
  1. AMVUTTRA [Suspect]
     Active Substance: VUTRISIRAN
     Indication: Hereditary neuropathic amyloidosis
     Dosage: 25 MILLIGRAM, Q3M
     Route: 058
     Dates: start: 20221210

REACTIONS (6)
  - Anaemia [Unknown]
  - Peripheral swelling [Unknown]
  - Haemodialysis [Unknown]
  - Fall [Unknown]
  - Therapy interrupted [Unknown]
  - Malaise [Unknown]

NARRATIVE: CASE EVENT DATE: 20230324
